FAERS Safety Report 9144361 (Version 1)
Quarter: 2013Q1

REPORT INFORMATION
  Report Type: Report from Study
  Country: FR (occurrence: FR)
  Receive Date: 20130306
  Receipt Date: 20130306
  Transmission Date: 20140127
  Serious: Yes (Hospitalization)
  Sender: FDA-Public Use
  Company Number: FR-ROCHE-1195643

PATIENT
  Age: 59 Year
  Sex: Female
  Weight: 51 kg

DRUGS (79)
  1. TOCILIZUMAB [Suspect]
     Indication: RHEUMATOID ARTHRITIS
     Route: 065
     Dates: start: 20100722
  2. TOCILIZUMAB [Suspect]
     Route: 065
     Dates: start: 20100819
  3. TOCILIZUMAB [Suspect]
     Route: 065
     Dates: start: 20100916
  4. TOCILIZUMAB [Suspect]
     Route: 065
     Dates: start: 20101014
  5. TOCILIZUMAB [Suspect]
     Route: 065
     Dates: start: 20101118
  6. TOCILIZUMAB [Suspect]
     Route: 065
     Dates: start: 20110106
  7. TOCILIZUMAB [Suspect]
     Route: 065
     Dates: start: 20110203
  8. TOCILIZUMAB [Suspect]
     Route: 065
     Dates: start: 20110303
  9. TOCILIZUMAB [Suspect]
     Route: 065
     Dates: start: 20110331
  10. TOCILIZUMAB [Suspect]
     Route: 065
     Dates: start: 20110429
  11. TOCILIZUMAB [Suspect]
     Route: 065
     Dates: start: 20110526
  12. TOCILIZUMAB [Suspect]
     Route: 065
     Dates: start: 20110623
  13. TOCILIZUMAB [Suspect]
     Route: 065
     Dates: start: 20110801
  14. TOCILIZUMAB [Suspect]
     Route: 065
     Dates: start: 20110901
  15. TOCILIZUMAB [Suspect]
     Route: 065
     Dates: start: 20110929
  16. TOCILIZUMAB [Suspect]
     Route: 065
     Dates: start: 20111027
  17. TOCILIZUMAB [Suspect]
     Route: 065
     Dates: start: 20111123
  18. TOCILIZUMAB [Suspect]
     Route: 065
     Dates: start: 20111219
  19. TOCILIZUMAB [Suspect]
     Route: 065
     Dates: start: 20120116
  20. TOCILIZUMAB [Suspect]
     Route: 065
     Dates: start: 20120213
  21. TOCILIZUMAB [Suspect]
     Route: 065
     Dates: start: 20120316
  22. TOCILIZUMAB [Suspect]
     Route: 065
     Dates: start: 20120522
  23. TOCILIZUMAB [Suspect]
     Route: 065
     Dates: start: 20120618
  24. CORTANCYL [Suspect]
     Indication: RHEUMATOID ARTHRITIS
     Route: 065
     Dates: start: 20100722
  25. CORTANCYL [Suspect]
     Route: 065
     Dates: start: 20100819
  26. CORTANCYL [Suspect]
     Route: 065
     Dates: start: 20100916
  27. CORTANCYL [Suspect]
     Route: 065
     Dates: start: 20101014
  28. BI-PROFENID [Suspect]
     Indication: PRODUCT USED FOR UNKNOWN INDICATION
     Route: 065
  29. HYDROCORTISONE [Concomitant]
     Route: 065
     Dates: start: 20100819
  30. HYDROCORTISONE [Concomitant]
     Route: 065
     Dates: start: 20100916
  31. HYDROCORTISONE [Concomitant]
     Route: 065
     Dates: start: 20101014
  32. HYDROCORTISONE [Concomitant]
     Route: 065
     Dates: start: 20101118
  33. HYDROCORTISONE [Concomitant]
     Route: 065
     Dates: start: 20110106
  34. HYDROCORTISONE [Concomitant]
     Route: 065
     Dates: start: 20110203
  35. HYDROCORTISONE [Concomitant]
     Route: 065
     Dates: start: 20110303
  36. HYDROCORTISONE [Concomitant]
     Route: 065
     Dates: start: 20110331
  37. HYDROCORTISONE [Concomitant]
     Route: 065
     Dates: start: 20110429
  38. HYDROCORTISONE [Concomitant]
     Route: 065
     Dates: start: 20110526
  39. HYDROCORTISONE [Concomitant]
     Route: 065
     Dates: start: 20110623
  40. HYDROCORTISONE [Concomitant]
     Route: 065
     Dates: start: 20110801
  41. HYDROCORTISONE [Concomitant]
     Route: 065
     Dates: start: 20110901
  42. HYDROCORTISONE [Concomitant]
     Route: 065
     Dates: start: 20110929
  43. HYDROCORTISONE [Concomitant]
     Route: 065
     Dates: start: 20111027
  44. HYDROCORTISONE [Concomitant]
     Route: 065
     Dates: start: 20111123
  45. HYDROCORTISONE [Concomitant]
     Route: 065
     Dates: start: 20111219
  46. HYDROCORTISONE [Concomitant]
     Route: 065
     Dates: start: 20120116
  47. HYDROCORTISONE [Concomitant]
     Route: 065
     Dates: start: 20120213
  48. HYDROCORTISONE [Concomitant]
     Route: 065
     Dates: start: 20120316
  49. HYDROCORTISONE [Concomitant]
     Route: 065
     Dates: start: 20120522
  50. HYDROCORTISONE [Concomitant]
     Route: 065
     Dates: start: 20120618
  51. ACTONEL [Concomitant]
     Route: 065
     Dates: start: 20100819
  52. ACTONEL [Concomitant]
     Route: 065
     Dates: start: 20100916
  53. ACTONEL [Concomitant]
     Route: 065
     Dates: start: 20101014
  54. ACTONEL [Concomitant]
     Route: 065
     Dates: start: 20101118
  55. ACTONEL [Concomitant]
     Route: 065
     Dates: start: 20110106
  56. ACLASTA [Concomitant]
     Route: 065
     Dates: start: 20110203
  57. ACLASTA [Concomitant]
     Route: 065
     Dates: start: 20110303
  58. ACLASTA [Concomitant]
     Route: 065
     Dates: start: 20110331
  59. ACLASTA [Concomitant]
     Route: 065
     Dates: start: 20110429
  60. ACLASTA [Concomitant]
     Route: 065
     Dates: start: 20110526
  61. ACLASTA [Concomitant]
     Route: 065
     Dates: start: 20110623
  62. ACLASTA [Concomitant]
     Route: 065
     Dates: start: 20110801
  63. ACLASTA [Concomitant]
     Route: 065
     Dates: start: 20110901
  64. ACLASTA [Concomitant]
     Route: 065
     Dates: start: 20110929
  65. ACLASTA [Concomitant]
     Route: 065
     Dates: start: 20111027
  66. ACLASTA [Concomitant]
     Route: 065
     Dates: start: 20111123
  67. ACLASTA [Concomitant]
     Route: 065
     Dates: start: 20111219
  68. PANSORAL [Concomitant]
     Route: 065
     Dates: start: 20110203
  69. PANSORAL [Concomitant]
     Route: 065
     Dates: start: 20110303
  70. PANSORAL [Concomitant]
     Route: 065
     Dates: start: 20110331
  71. PANSORAL [Concomitant]
     Route: 065
     Dates: start: 20110429
  72. PANSORAL [Concomitant]
     Route: 065
     Dates: start: 20110526
  73. PANSORAL [Concomitant]
     Route: 065
     Dates: start: 20110623
  74. PANSORAL [Concomitant]
     Route: 065
     Dates: start: 20110801
  75. PANSORAL [Concomitant]
     Route: 065
     Dates: start: 20110901
  76. PANSORAL [Concomitant]
     Route: 065
     Dates: start: 20110929
  77. PANSORAL [Concomitant]
     Route: 065
     Dates: start: 20111027
  78. PANSORAL [Concomitant]
     Route: 065
     Dates: start: 20111123
  79. PANSORAL [Concomitant]
     Route: 065
     Dates: start: 20111219

REACTIONS (16)
  - Joint arthroplasty [Recovered/Resolved]
  - Infusion site erythema [Recovered/Resolved]
  - Diarrhoea [Recovered/Resolved]
  - Asthenia [Recovered/Resolved]
  - Rhinitis [Recovered/Resolved]
  - Oral herpes [Recovered/Resolved]
  - Eye pain [Recovered/Resolved]
  - Ocular hyperaemia [Recovered/Resolved]
  - Eye pruritus [Recovered/Resolved]
  - Lung disorder [Recovered/Resolved]
  - Pleural fibrosis [Recovered/Resolved]
  - Onychomycosis [Recovered/Resolved]
  - Nasopharyngitis [Recovered/Resolved]
  - Aphthous stomatitis [Recovered/Resolved]
  - Oropharyngeal pain [Recovered/Resolved]
  - Abdominal distension [Recovered/Resolved]
